FAERS Safety Report 6035473-4 (Version None)
Quarter: 2009Q1

REPORT INFORMATION
  Report Type: 
  Country: None (occurrence: None)
  Receive Date: 20090113
  Receipt Date: 20081209
  Transmission Date: 20090719
  Serious: No
  Sender: FDA-Public Use
  Company Number: US-BAYER-200840287NA

PATIENT
  Age: 78 Year
  Sex: Female

DRUGS (8)
  1. AVELOX [Suspect]
     Indication: SPUTUM DISCOLOURED
     Dates: start: 20081106, end: 20081110
  2. XOPENEX [Suspect]
     Indication: EMPHYSEMA
     Route: 055
     Dates: start: 20080801
  3. ADVAIR DISKUS 250/50 [Suspect]
     Indication: EMPHYSEMA
     Dates: start: 20050101, end: 20081110
  4. SPIRIVA [Concomitant]
  5. NIFEDIPINE [Concomitant]
  6. PREDNISONE [Concomitant]
  7. OXYGEN [Concomitant]
  8. ALBUTEROL [Concomitant]

REACTIONS (7)
  - DIZZINESS [None]
  - DRY MOUTH [None]
  - DYSPHONIA [None]
  - HYPOAESTHESIA FACIAL [None]
  - HYPOAESTHESIA ORAL [None]
  - NAUSEA [None]
  - SPUTUM DISCOLOURED [None]
